FAERS Safety Report 20853188 (Version 3)
Quarter: 2022Q3

REPORT INFORMATION
  Report Type: Report from Study
  Country: US (occurrence: US)
  Receive Date: 20220520
  Receipt Date: 20220818
  Transmission Date: 20221027
  Serious: Yes (Hospitalization, Other)
  Sender: FDA-Public Use
  Company Number: US-BIOVITRUM-2021US9977

PATIENT
  Age: 67 Year
  Sex: Male

DRUGS (4)
  1. KINERET [Suspect]
     Active Substance: ANAKINRA
     Indication: Encephalitis
     Dosage: 300 MG EVERY MORNING, 200 MG EVERY EVENING
     Dates: start: 20210129
  2. KINERET [Suspect]
     Active Substance: ANAKINRA
     Indication: Encephalomyelitis
     Dates: start: 20210129
  3. KINERET [Suspect]
     Active Substance: ANAKINRA
     Indication: Urticaria
     Dates: start: 20190430
  4. KINERET [Suspect]
     Active Substance: ANAKINRA
     Dosage: 300MG SUBCUTANEOUS ONCE IN THE MORNING AND 200MG ONCE IN THE EVENING
     Dates: start: 202101

REACTIONS (6)
  - Pulmonary embolism [Unknown]
  - Condition aggravated [Recovered/Resolved]
  - Encephalomyelitis [Recovered/Resolved]
  - Encephalitis [Recovered/Resolved]
  - COVID-19 [Unknown]
  - Off label use [Unknown]

NARRATIVE: CASE EVENT DATE: 20190430
